FAERS Safety Report 7030410-8 (Version None)
Quarter: 2010Q4

REPORT INFORMATION
  Report Type: 
  Country: None (occurrence: None)
  Receive Date: 20101001
  Receipt Date: 20100727
  Transmission Date: 20110411
  Serious: No
  Sender: FDA-Public Use
  Company Number: 2010-00534

PATIENT
  Age: 74 Year
  Sex: Female
  Weight: 67.1324 kg

DRUGS (15)
  1. ZICAM COLD REMEDY NASAL GEL [Suspect]
     Dosage: QID X 2 DAYS
     Dates: start: 20100518, end: 20100519
  2. CITRACEL [Concomitant]
  3. LEVOXYL [Concomitant]
  4. NEXIUM [Concomitant]
  5. TOPROL-XL [Concomitant]
  6. PLAQUENIL [Concomitant]
  7. FLAXSEED [Concomitant]
  8. MOVEFREE [Concomitant]
  9. VITAMIN D [Concomitant]
  10. VITAMIN B-12 [Concomitant]
  11. VITAMIN B6 [Concomitant]
  12. COQENZYME [Concomitant]
  13. FOLIC ACID [Concomitant]
  14. TRAVATINE EYE DROPS [Concomitant]
  15. ASPIRIN [Concomitant]

REACTIONS (2)
  - ANOSMIA [None]
  - HYPOGEUSIA [None]
